FAERS Safety Report 8887473 (Version 1)
Quarter: 2012Q4

REPORT INFORMATION
  Report Type: Spontaneous
  Country: US (occurrence: None)
  Receive Date: 20121101
  Receipt Date: 20121101
  Transmission Date: 20130627
  Serious: Yes (Other)
  Sender: FDA-Public Use
  Company Number: None

PATIENT
  Sex: Female
  Weight: 72.58 kg

DRUGS (2)
  1. BUPROPION HCL XL [Suspect]
     Route: 048
     Dates: start: 201208, end: 201209
  2. BUPROPION HCL XL [Suspect]
     Route: 048
     Dates: start: 201208, end: 201209

REACTIONS (1)
  - Rash [None]
